FAERS Safety Report 10644897 (Version 5)
Quarter: 2015Q4

REPORT INFORMATION
  Report Type: Report from Study
  Country: DE (occurrence: DE)
  Receive Date: 20141211
  Receipt Date: 20151102
  Transmission Date: 20160304
  Serious: Yes (Life-Threatening, Hospitalization, Other)
  Sender: FDA-Public Use
  Company Number: DE-ABBVIE-14K-062-1318928-00

PATIENT
  Age: 34 Year
  Sex: Female
  Weight: 97 kg

DRUGS (2)
  1. HUMIRA [Suspect]
     Active Substance: ADALIMUMAB
     Indication: CROHN^S DISEASE
     Route: 058
     Dates: start: 201310, end: 201405
  2. HUMIRA [Suspect]
     Active Substance: ADALIMUMAB
     Route: 058
     Dates: start: 20150701, end: 20150916

REACTIONS (11)
  - Intestinal stenosis [Recovered/Resolved]
  - Intestinal fistula [Recovering/Resolving]
  - Gastrointestinal inflammation [Recovering/Resolving]
  - Large intestine perforation [Recovered/Resolved with Sequelae]
  - Post procedural sepsis [Recovered/Resolved with Sequelae]
  - Wound [Recovering/Resolving]
  - Peritonitis [Recovered/Resolved with Sequelae]
  - Suture rupture [Not Recovered/Not Resolved]
  - Impaired healing [Not Recovered/Not Resolved]
  - Abscess intestinal [Recovering/Resolving]
  - Enterostomy [Recovering/Resolving]

NARRATIVE: CASE EVENT DATE: 201407
